FAERS Safety Report 25689181 (Version 1)
Quarter: 2025Q3

REPORT INFORMATION
  Report Type: Spontaneous
  Country: SG (occurrence: SG)
  Receive Date: 20250818
  Receipt Date: 20250818
  Transmission Date: 20251021
  Serious: Yes (Other)
  Sender: Kenvue
  Company Number: SG-KENVUE-20250804265

PATIENT

DRUGS (3)
  1. ACETAMINOPHEN [Suspect]
     Active Substance: ACETAMINOPHEN
     Indication: Product used for unknown indication
     Route: 065
  2. MEFENAMIC ACID [Suspect]
     Active Substance: MEFENAMIC ACID
     Indication: Product used for unknown indication
     Route: 065
  3. DICLOFENAC [Suspect]
     Active Substance: DICLOFENAC
     Indication: Product used for unknown indication
     Route: 065

REACTIONS (2)
  - Face oedema [Unknown]
  - Rash [Unknown]

NARRATIVE: CASE EVENT DATE: 20100101
